FAERS Safety Report 9774492 (Version 1)
Quarter: 2013Q4

REPORT INFORMATION
  Report Type: Report from Study
  Country: US (occurrence: US)
  Receive Date: 20131220
  Receipt Date: 20131220
  Transmission Date: 20140711
  Serious: Yes (Hospitalization, Disabling)
  Sender: FDA-Public Use
  Company Number: US-US-EMD SERONO, INC.-7257313

PATIENT
  Sex: Female

DRUGS (1)
  1. REBIF [Suspect]
     Indication: MULTIPLE SCLEROSIS
     Route: 058
     Dates: start: 20030901, end: 201312

REACTIONS (6)
  - Coma [Unknown]
  - Multiple sclerosis [Not Recovered/Not Resolved]
  - Osteoporosis [Unknown]
  - Intervertebral disc degeneration [Unknown]
  - Scar [Not Recovered/Not Resolved]
  - Injection site erythema [Unknown]
